FAERS Safety Report 10233944 (Version 1)
Quarter: 2014Q2

REPORT INFORMATION
  Report Type: Spontaneous
  Country: CN (occurrence: CN)
  Receive Date: 20140612
  Receipt Date: 20140612
  Transmission Date: 20141212
  Serious: Yes (Other)
  Sender: FDA-Public Use
  Company Number: CN-ASTRAZENECA-2014SE40569

PATIENT
  Age: 25588 Day
  Sex: Male

DRUGS (6)
  1. METOPROLOL SUCCINATE [Suspect]
     Indication: ILL-DEFINED DISORDER
     Route: 048
     Dates: start: 20130726, end: 20130905
  2. METOPROLOL TARTRATE [Suspect]
     Indication: ILL-DEFINED DISORDER
     Route: 048
     Dates: start: 20130726, end: 20130905
  3. ATORVASTATIN CALCIUM [Suspect]
     Indication: ILL-DEFINED DISORDER
     Route: 048
     Dates: start: 20130724, end: 20130905
  4. PERINDOPRIL [Concomitant]
     Indication: ILL-DEFINED DISORDER
     Route: 048
     Dates: start: 20130724, end: 20130905
  5. ASPIRIN [Concomitant]
     Indication: ILL-DEFINED DISORDER
     Route: 048
     Dates: start: 20130724, end: 20130905
  6. CLOPIDOGREL [Concomitant]
     Indication: ILL-DEFINED DISORDER
     Route: 048
     Dates: start: 20130724, end: 20130905

REACTIONS (2)
  - Glycosylated haemoglobin increased [Not Recovered/Not Resolved]
  - Chest discomfort [Unknown]
